FAERS Safety Report 17101993 (Version 2)
Quarter: 2019Q4

REPORT INFORMATION
  Report Type: Spontaneous
  Country: US (occurrence: US)
  Receive Date: 20191202
  Receipt Date: 20191218
  Transmission Date: 20200122
  Serious: No
  Sender: FDA-Public Use
  Company Number: US-BAUSCH-BL-2019-062204

PATIENT
  Age: 54 Year
  Sex: Female
  Weight: 67.65 kg

DRUGS (6)
  1. SYNTHROID [Concomitant]
     Active Substance: LEVOTHYROXINE SODIUM
     Indication: PRODUCT USED FOR UNKNOWN INDICATION
     Route: 048
  2. LUMIFY [Suspect]
     Active Substance: BRIMONIDINE TARTRATE
     Indication: OCULAR HYPERAEMIA
     Dosage: VOLUME: 2.5 ML,
     Route: 047
     Dates: start: 201902, end: 2019
  3. VITAMIN D [Concomitant]
     Active Substance: VITAMIN D NOS
     Indication: PRODUCT USED FOR UNKNOWN INDICATION
     Route: 048
  4. LUMIFY [Suspect]
     Active Substance: BRIMONIDINE TARTRATE
     Dosage: VOLUME: 7.5 ML, 1-2 DROPS IN EACH EYES AS DIRECTED, AND USED FOR 3-4 TIMES
     Route: 047
     Dates: start: 201911, end: 2019
  5. LUMIFY [Suspect]
     Active Substance: BRIMONIDINE TARTRATE
     Dosage: VOLUME: 7.5 ML
     Route: 047
     Dates: start: 201912
  6. LUMIFY [Suspect]
     Active Substance: BRIMONIDINE TARTRATE
     Dosage: VOLUME: 2.5 ML
     Route: 047
     Dates: start: 2019, end: 201912

REACTIONS (2)
  - Therapeutic product effect incomplete [Unknown]
  - Therapy cessation [Unknown]

NARRATIVE: CASE EVENT DATE: 2019
